FAERS Safety Report 5015247-3 (Version None)
Quarter: 2006Q2

REPORT INFORMATION
  Report Type: 
  Country: None (occurrence: None)
  Receive Date: 20060425
  Receipt Date: 20060119
  Transmission Date: 20061013
  Serious: No
  Sender: FDA-Public Use
  Company Number: 2006-BP-00738BP

PATIENT
  Sex: Male

DRUGS (3)
  1. APTIVUS/RITONAVIR CAPSULES [Suspect]
     Indication: HIV INFECTION
     Dosage: SEE TEXT (SEE TEXT,RTV 100 BID 12/19/05 ONE WEEK, 200 BID 1/4 ONE WEEK, TPV 01/11/06),PO
     Route: 048
     Dates: start: 20060111
  2. FUZEON [Concomitant]
  3. TDF [Concomitant]

REACTIONS (2)
  - LIVER FUNCTION TEST ABNORMAL [None]
  - NAUSEA [None]
